FAERS Safety Report 4452343-3 (Version None)
Quarter: 2004Q3

REPORT INFORMATION
  Report Type: 
  Country: None (occurrence: None)
  Receive Date: 20040915
  Receipt Date: 20040909
  Transmission Date: 20050211
  Serious: Yes (Hospitalization)
  Sender: FDA-Public Use
  Company Number: 200412665GDS

PATIENT
  Age: 55 Year
  Sex: Male

DRUGS (1)
  1. ASPIRIN [Suspect]
     Dosage: 1000 MG, TOTAL DAILY, ORAL
     Route: 048
     Dates: end: 20040305

REACTIONS (3)
  - DIZZINESS [None]
  - GASTRIC HAEMORRHAGE [None]
  - VOMITING [None]
